FAERS Safety Report 24595563 (Version 2)
Quarter: 2024Q4

REPORT INFORMATION
  Report Type: Spontaneous
  Country: US (occurrence: US)
  Receive Date: 20241109
  Receipt Date: 20241109
  Transmission Date: 20250114
  Serious: Yes (Other)
  Sender: ABBVIE
  Company Number: US-ABBVIE-5991225

PATIENT
  Age: 91 Year
  Sex: Male

DRUGS (1)
  1. REFRESH TEARS [Suspect]
     Active Substance: CARBOXYMETHYLCELLULOSE SODIUM
     Indication: Dry eye
     Dosage: FREQUENCY: EVERY HOUR OR SO
     Route: 047

REACTIONS (3)
  - Eye operation [Unknown]
  - Eye pain [Unknown]
  - Dry eye [Unknown]
